FAERS Safety Report 15730903 (Version 1)
Quarter: 2018Q4

REPORT INFORMATION
  Report Type: Spontaneous
  Country: HU (occurrence: HU)
  Receive Date: 20181217
  Receipt Date: 20181217
  Transmission Date: 20190205
  Serious: Yes (Hospitalization)
  Sender: FDA-Public Use
  Company Number: HU-TEVA-2018-HU-987171

PATIENT
  Age: 14 Year
  Sex: Female

DRUGS (1)
  1. CERUCAL [Suspect]
     Active Substance: METOCLOPRAMIDE HYDROCHLORIDE
     Indication: PROPHYLAXIS OF NAUSEA AND VOMITING
     Dosage: 10 MILLIGRAM DAILY;
     Dates: start: 20181114, end: 20181115

REACTIONS (3)
  - Blood creatine phosphokinase increased [Unknown]
  - Torticollis [Recovered/Resolved]
  - Presyncope [Recovered/Resolved]

NARRATIVE: CASE EVENT DATE: 20181115
